FAERS Safety Report 20375507 (Version 3)
Quarter: 2022Q1

REPORT INFORMATION
  Report Type: Report from Study
  Country: US (occurrence: US)
  Receive Date: 20220125
  Receipt Date: 20220310
  Transmission Date: 20220423
  Serious: Yes (Hospitalization, Other)
  Sender: FDA-Public Use
  Company Number: US-NOVARTISPH-NVSC2022US013194

PATIENT
  Age: 57 Year
  Sex: Male

DRUGS (2)
  1. ENTRESTO [Suspect]
     Active Substance: SACUBITRIL\VALSARTAN
     Indication: Cardiac failure
     Dosage: 100 MG, BID (49/51 MG)
     Route: 048
     Dates: start: 2019
  2. FISH OIL [Concomitant]
     Active Substance: FISH OIL
     Indication: Product used for unknown indication
     Dosage: 1000 UNITS BID
     Route: 065
     Dates: start: 2020

REACTIONS (7)
  - Atrial fibrillation [Recovered/Resolved]
  - Sepsis [Recovered/Resolved]
  - Osteomyelitis [Recovered/Resolved]
  - Oesophageal stenosis [Recovered/Resolved]
  - Weight decreased [Recovering/Resolving]
  - Iron deficiency anaemia [Recovered/Resolved]
  - Body mass index increased [Unknown]

NARRATIVE: CASE EVENT DATE: 20191101
